FAERS Safety Report 10534735 (Version 1)
Quarter: 2014Q4

REPORT INFORMATION
  Report Type: Report from Study
  Country: US (occurrence: US)
  Receive Date: 20141022
  Receipt Date: 20141022
  Transmission Date: 20150529
  Serious: Yes (Hospitalization)
  Sender: FDA-Public Use
  Company Number: US-MYLANLABS-2014M1007163

PATIENT

DRUGS (29)
  1. TYLENOL [Concomitant]
     Active Substance: ACETAMINOPHEN
  2. NEXIUM [Concomitant]
     Active Substance: ESOMEPRAZOLE MAGNESIUM
  3. FLAGYL [Concomitant]
     Active Substance: METRONIDAZOLE\METRONIDAZOLE HYDROCHLORIDE
     Dosage: UNK
     Dates: start: 20140704, end: 20140712
  4. ACZONE [Concomitant]
     Active Substance: DAPSONE
  5. ZOFRAN                             /00955301/ [Concomitant]
     Active Substance: ONDANSETRON HYDROCHLORIDE
  6. PRAVACHOL [Concomitant]
     Active Substance: PRAVASTATIN SODIUM
  7. PROGRAF [Concomitant]
     Active Substance: TACROLIMUS\TACROLIMUS ANHYDROUS
  8. MAALOX PLUS EXTRA STRENGTH [Concomitant]
  9. NEURONTIN [Concomitant]
     Active Substance: GABAPENTIN
  10. NITROSTAT [Concomitant]
     Active Substance: NITROGLYCERIN
  11. MIRALAX                            /06344701/ [Concomitant]
  12. TACROLIMUS. [Suspect]
     Active Substance: TACROLIMUS
     Indication: RENAL TRANSPLANT
     Dosage: 1 MG, BID
     Route: 048
     Dates: start: 20131005
  13. BASILIXIMAB [Suspect]
     Active Substance: BASILIXIMAB
     Indication: RENAL TRANSPLANT
     Dosage: 20 MG, DAY 0 AND DAY 4
     Route: 042
     Dates: start: 20131004, end: 20131008
  14. APRESOLINE HYDROCHLORIDE [Concomitant]
     Active Substance: HYDRALAZINE HYDROCHLORIDE
  15. SODIUM BICARBONATE. [Concomitant]
     Active Substance: SODIUM BICARBONATE
  16. THERAGRAN-M                        /06012901/ [Concomitant]
  17. VANCOMYCIN [Concomitant]
     Active Substance: VANCOMYCIN
     Dosage: UNK
     Dates: start: 20140712
  18. AMLODIPINE [Suspect]
     Active Substance: AMLODIPINE BESYLATE
     Dosage: 10 MG, QD
     Dates: start: 20140716
  19. TAMSULOSIN [Concomitant]
     Active Substance: TAMSULOSIN
  20. INSULIN LISPRO [Concomitant]
     Active Substance: INSULIN LISPRO
  21. AMLODIPINE [Suspect]
     Active Substance: AMLODIPINE BESYLATE
     Indication: HYPERTENSION
     Dosage: 10 MG, QD
     Route: 048
     Dates: start: 20110425, end: 20140713
  22. VITAMIN D [Concomitant]
     Active Substance: CHOLECALCIFEROL
  23. LANTUS [Concomitant]
     Active Substance: INSULIN GLARGINE
  24. ZOFRAN                             /00955301/ [Concomitant]
     Active Substance: ONDANSETRON HYDROCHLORIDE
  25. OXYCODONE [Concomitant]
     Active Substance: OXYCODONE
  26. ROCALTROL [Concomitant]
     Active Substance: CALCITRIOL
  27. AGGRENOX [Concomitant]
     Active Substance: ASPIRIN\DIPYRIDAMOLE
  28. HEPARIN [Concomitant]
     Active Substance: HEPARIN SODIUM
  29. DELTASONE                          /00044701/ [Concomitant]

REACTIONS (5)
  - Respiratory distress [Recovered/Resolved]
  - Bacteraemia [Recovered/Resolved with Sequelae]
  - Pulmonary oedema [Recovered/Resolved]
  - Deep vein thrombosis [Recovered/Resolved with Sequelae]
  - Cytomegalovirus infection [Recovered/Resolved with Sequelae]

NARRATIVE: CASE EVENT DATE: 20140713
